FAERS Safety Report 24768503 (Version 1)
Quarter: 2024Q4

REPORT INFORMATION
  Report Type: Report from Study
  Country: PT (occurrence: PT)
  Receive Date: 20241224
  Receipt Date: 20241224
  Transmission Date: 20250114
  Serious: Yes (Other)
  Sender: ABBVIE
  Company Number: PT-ABBVIE-6039492

PATIENT
  Age: 65 Year
  Sex: Male

DRUGS (14)
  1. CARBIDOPA\LEVODOPA [Suspect]
     Active Substance: CARBIDOPA\LEVODOPA
     Indication: Parkinson^s disease
     Dosage: 240 MG + 12 MG, LO:0.90;HI:0.44;BA:0.41;LO:0.26;EX:0.15
     Route: 058
     Dates: start: 2024, end: 20241213
  2. CARBIDOPA\LEVODOPA [Suspect]
     Active Substance: CARBIDOPA\LEVODOPA
     Dosage: 240 MG + 12 MG, LO:0.90;HI:0.41;BA:0.34;LO:0.26;EX:0.15, LAST ADMIN DATE: 2024
     Route: 058
     Dates: start: 20241030
  3. XADAGO [Concomitant]
     Active Substance: SAFINAMIDE MESYLATE
     Indication: Parkinson^s disease
     Dosage: 1 TABLET, BEFORE DUODOPA
  4. ROPINIROLE HYDROCHLORIDE [Concomitant]
     Active Substance: ROPINIROLE HYDROCHLORIDE
     Indication: Parkinson^s disease
     Dosage: 1 TABLET, BEFORE DUODOPA
  5. HERBALS\SAW PALMETTO [Concomitant]
     Active Substance: HERBALS\SAW PALMETTO
     Indication: Product used for unknown indication
     Dosage: BEFORE DUODOPA
  6. FOLIC ACID [Concomitant]
     Active Substance: FOLIC ACID
     Indication: Product used for unknown indication
     Dosage: BEFORE DUODOPA
  7. TAMSULOSIN [Concomitant]
     Active Substance: TAMSULOSIN
     Indication: Benign prostatic hyperplasia
     Dosage: 1 TABLET, BEFORE DUODOPA
  8. AMANTADINE HYDROCHLORIDE [Concomitant]
     Active Substance: AMANTADINE HYDROCHLORIDE
     Indication: Parkinson^s disease
     Dosage: 2 TABLET, 1 TABLET AT BREAKFAST + 1 TABLET LUNCH, BEFORE DUODOPA
  9. SILDENAFIL [Concomitant]
     Active Substance: SILDENAFIL
     Indication: Product used for unknown indication
     Dosage: BEFORE DUODOPA
  10. ASPIRIN [Concomitant]
     Active Substance: ASPIRIN
     Indication: Vascular disorder prophylaxis
     Dosage: 1 TABLET, BEFORE DUODOPA
  11. LYRICA [Concomitant]
     Active Substance: PREGABALIN
     Indication: Product used for unknown indication
     Dosage: 1 TABLET, AT DINNER, BEFORE DUODOPA
  12. CYANOCOBALAMIN [Concomitant]
     Active Substance: CYANOCOBALAMIN
     Indication: Product used for unknown indication
     Dosage: 1 TABLET, BEFORE DUODOPA
  13. ATORVASTATIN [Concomitant]
     Active Substance: ATORVASTATIN
     Indication: Blood cholesterol
     Dosage: 1 TABLET, BEFORE DUODOPA
  14. RISIDON [Concomitant]
     Active Substance: METFORMIN HYDROCHLORIDE
     Indication: Product used for unknown indication
     Dosage: BEFORE DUODOPA

REACTIONS (9)
  - Hypersensitivity [Not Recovered/Not Resolved]
  - Infusion site swelling [Not Recovered/Not Resolved]
  - Infusion site pain [Not Recovered/Not Resolved]
  - Infusion site warmth [Recovering/Resolving]
  - Infusion site erythema [Recovering/Resolving]
  - Muscle injury [Not Recovered/Not Resolved]
  - Infusion site pain [Not Recovered/Not Resolved]
  - Infusion site nodule [Not Recovered/Not Resolved]
  - Unintentional medical device removal [Unknown]

NARRATIVE: CASE EVENT DATE: 20240101
